FAERS Safety Report 7620289-5 (Version None)
Quarter: 2011Q3

REPORT INFORMATION
  Report Type: 
  Country: None (occurrence: None)
  Receive Date: 20110719
  Receipt Date: 20110711
  Transmission Date: 20111222
  Serious: Yes (Other)
  Sender: FDA-Public Use
  Company Number: PHHY2011AU62369

PATIENT

DRUGS (1)
  1. EXJADE [Suspect]

REACTIONS (2)
  - AMENORRHOEA [None]
  - SERUM FERRITIN INCREASED [None]
